FAERS Safety Report 9180903 (Version 3)
Quarter: 2013Q2

REPORT INFORMATION
  Report Type: Report from Study
  Country: CA (occurrence: CA)
  Receive Date: 20130322
  Receipt Date: 20130422
  Transmission Date: 20140414
  Serious: Yes (Disabling, Other)
  Sender: FDA-Public Use
  Company Number: PHHY2010CA09548

PATIENT
  Age: 69 Year
  Sex: Female

DRUGS (10)
  1. ACLASTA [Suspect]
     Indication: OSTEOPOROSIS POSTMENOPAUSAL
     Dosage: 5 MG/100ML
     Route: 042
     Dates: start: 20090227
  2. ACLASTA [Suspect]
     Dosage: 5 MG/100ML
     Route: 042
     Dates: start: 20100407
  3. ACLASTA [Suspect]
     Dosage: 5 MG/100ML
     Route: 042
     Dates: start: 20110407
  4. ACLASTA [Suspect]
     Dosage: 5 MG/100ML
     Route: 042
     Dates: start: 20120417
  5. VITAMIN D [Concomitant]
     Dosage: 1000 IU, QD
     Route: 048
  6. CALCIUM [Concomitant]
     Dosage: 500 MG, BID
     Route: 048
  7. TYLENOL [Concomitant]
     Indication: ARTHRITIS
     Dosage: UNK UKN, PRN
  8. ASA [Concomitant]
     Dosage: 8 MG, QD
     Route: 048
  9. FELODIPIN [Concomitant]
     Dosage: 10 MG, UNK
  10. FELODIPIN [Concomitant]
     Dosage: 6 MG, UNK

REACTIONS (17)
  - Blindness unilateral [Not Recovered/Not Resolved]
  - Dementia with Lewy bodies [Unknown]
  - Parkinsonism [Unknown]
  - Gait disturbance [Unknown]
  - Tremor [Unknown]
  - Speech disorder [Unknown]
  - Cerebrovascular accident [Unknown]
  - Headache [Unknown]
  - Depression [Unknown]
  - Feeling abnormal [Unknown]
  - Procedural pain [Not Recovered/Not Resolved]
  - Blood pressure abnormal [Unknown]
  - Syncope [Unknown]
  - Insomnia [Unknown]
  - Back pain [Not Recovered/Not Resolved]
  - Drug administration error [Recovered/Resolved]
  - Incorrect dose administered [Recovered/Resolved]
